FAERS Safety Report 4835026-7 (Version None)
Quarter: 2005Q4

REPORT INFORMATION
  Report Type: 
  Country: None (occurrence: None)
  Receive Date: 20051114
  Receipt Date: 20051104
  Transmission Date: 20060501
  Serious: Yes (Hospitalization, Other)
  Sender: FDA-Public Use
  Company Number: 2005151423

PATIENT
  Sex: Male

DRUGS (3)
  1. LIPITOR [Suspect]
     Indication: BLOOD CHOLESTEROL
     Dosage: 20 MG (10 MG, 2 IN 1 D)
     Dates: start: 19960101
  2. VIAGRA [Concomitant]
  3. ZOLOFT [Concomitant]

REACTIONS (4)
  - DEPRESSION [None]
  - ERECTILE DYSFUNCTION [None]
  - GANGRENE [None]
  - LEG AMPUTATION [None]
